FAERS Safety Report 8068216-3 (Version None)
Quarter: 2012Q1

REPORT INFORMATION
  Report Type: 
  Country: None (occurrence: None)
  Receive Date: 20120124
  Receipt Date: 20110929
  Transmission Date: 20120608
  Serious: No
  Sender: FDA-Public Use
  Company Number: US-AMGEN-USASP2011050501

PATIENT
  Sex: Female

DRUGS (2)
  1. PRILOSEC [Concomitant]
  2. PROLIA [Suspect]
     Indication: OSTEOPOROSIS POSTMENOPAUSAL
     Dosage: 60 MG, Q6MO
     Dates: start: 20110404

REACTIONS (6)
  - BLOOD CHOLESTEROL INCREASED [None]
  - ABDOMINAL RIGIDITY [None]
  - MYALGIA [None]
  - FLATULENCE [None]
  - NAUSEA [None]
  - ERUCTATION [None]
